FAERS Safety Report 7350143 (Version 2)
Quarter: 2014Q1

REPORT INFORMATION
  Report Type: Spontaneous
  Country: US (occurrence: US)
  Receive Date: 20100409
  Receipt Date: 20140121
  Transmission Date: 20141002
  Serious: No
  Sender: FDA-Public Use
  Company Number: US-JNJFOC-20100308601

PATIENT
  Age: 45 Year
  Sex: Female
  Weight: 46.27 kg

DRUGS (3)
  1. DURAGESIC [Suspect]
     Indication: FATIGUE
     Route: 062
     Dates: start: 201001
  2. DURAGESIC [Suspect]
     Indication: PAIN
     Route: 062
     Dates: start: 201001
  3. CELEXA [Concomitant]
     Indication: FATIGUE
     Route: 048
     Dates: start: 1996

REACTIONS (4)
  - Application site erosion [Recovered/Resolved]
  - Wrong technique in drug usage process [Recovered/Resolved]
  - Drug effect decreased [Not Recovered/Not Resolved]
  - Product quality issue [Unknown]
